FAERS Safety Report 20025899 (Version 1)
Quarter: 2021Q4

REPORT INFORMATION
  Report Type: Spontaneous
  Country: CA (occurrence: CA)
  Receive Date: 20211102
  Receipt Date: 20211102
  Transmission Date: 20220303
  Serious: Yes (Other)
  Sender: FDA-Public Use
  Company Number: CA-TEVA-2021-CA-1971001

PATIENT
  Sex: Male
  Weight: 84 kg

DRUGS (8)
  1. LEFLUNOMIDE [Suspect]
     Active Substance: LEFLUNOMIDE
     Route: 065
  2. HYDROXYCHLOROQUINE SULFATE [Suspect]
     Active Substance: HYDROXYCHLOROQUINE SULFATE
     Route: 065
  3. METHOTREXATE [Concomitant]
     Active Substance: METHOTREXATE
     Indication: Rheumatoid arthritis
     Route: 058
  4. PINICILLAMINE [Concomitant]
     Route: 065
  5. RUXENCE [Concomitant]
     Indication: Rheumatoid arthritis
     Route: 042
  6. SULFASALAZINE [Concomitant]
     Active Substance: SULFASALAZINE
     Route: 065
  7. TOFACITINIB [Concomitant]
     Active Substance: TOFACITINIB
     Dosage: 10 MILLIGRAM DAILY;
     Route: 065
  8. XELJANZ [Concomitant]
     Active Substance: TOFACITINIB CITRATE
     Indication: Rheumatoid arthritis
     Route: 065

REACTIONS (4)
  - Diarrhoea [Unknown]
  - Retinal toxicity [Unknown]
  - Skin reaction [Unknown]
  - Drug intolerance [Unknown]
